FAERS Safety Report 5092668-4 (Version None)
Quarter: 2006Q3

REPORT INFORMATION
  Report Type: 
  Country: None (occurrence: None)
  Receive Date: 20060828
  Receipt Date: 20060815
  Transmission Date: 20061208
  Serious: Yes (Death)
  Sender: FDA-Public Use
  Company Number: 2006059103

PATIENT
  Age: 6 Year
  Sex: Male

DRUGS (2)
  1. ZITHROMAX [Suspect]
     Indication: DRUG USE FOR UNKNOWN INDICATION
     Dosage: UNKNOWN (UNKNOWN), ORAL
     Route: 048
     Dates: start: 20060410
  2. TUSSIONEX [Suspect]
     Indication: COUGH
     Dosage: 5 ML (2.5 ML, 2 IN 1 D); ORAL
     Route: 048
     Dates: start: 20060410, end: 20060411

REACTIONS (7)
  - ACCIDENTAL DEATH [None]
  - CARDIO-RESPIRATORY ARREST [None]
  - DRUG PRESCRIBING ERROR [None]
  - DRUG TOXICITY [None]
  - INCORRECT DOSE ADMINISTERED [None]
  - OVERDOSE [None]
  - RESPIRATORY DEPRESSION [None]
